FAERS Safety Report 5191576-8 (Version None)
Quarter: 2006Q4

REPORT INFORMATION
  Report Type: 
  Country: None (occurrence: None)
  Receive Date: 20061220
  Receipt Date: 20061220
  Transmission Date: 20070319
  Serious: Yes (Life-Threatening, Hospitalization)
  Sender: FDA-Public Use
  Company Number: None

PATIENT
  Age: 41 Year
  Sex: Female
  Weight: 58.514 kg

DRUGS (1)
  1. EFFEXOR [Suspect]
     Indication: DEPRESSION
     Dosage: I PILL 2X DAILY PO
     Route: 048
     Dates: start: 20060828, end: 20060911

REACTIONS (12)
  - ABNORMAL BEHAVIOUR [None]
  - AMNESIA [None]
  - FALL [None]
  - HEAD INJURY [None]
  - IMPAIRED WORK ABILITY [None]
  - INCORRECT DOSE ADMINISTERED [None]
  - INDIFFERENCE [None]
  - OBSESSIVE THOUGHTS [None]
  - PERSONALITY DISORDER [None]
  - SKIN LACERATION [None]
  - SLEEP WALKING [None]
  - SUICIDAL IDEATION [None]
